FAERS Safety Report 7319591-6 (Version None)
Quarter: 2011Q1

REPORT INFORMATION
  Report Type: 
  Country: None (occurrence: None)
  Receive Date: 20110228
  Receipt Date: 20100603
  Transmission Date: 20110831
  Serious: No
  Sender: FDA-Public Use
  Company Number: A0862752A

PATIENT
  Age: 44 Year
  Sex: Female

DRUGS (24)
  1. COGENTIN [Concomitant]
  2. LAMOTRIGINE [Suspect]
     Indication: BIPOLAR DISORDER
     Dosage: 150MG PER DAY
     Route: 048
     Dates: start: 20090101
  3. CONCERTA [Concomitant]
  4. ASCORBIC ACID [Concomitant]
  5. VITAMIN-MINERAL COMPOUND TAB [Concomitant]
  6. SECTRAL [Concomitant]
  7. ZANAFLEX [Concomitant]
  8. HYOSCYAMINE [Concomitant]
  9. KLONOPIN [Concomitant]
  10. PROTONIX [Concomitant]
  11. FLONASE [Concomitant]
  12. BENADRYL [Concomitant]
  13. VITAMIN D [Concomitant]
  14. VICODIN [Concomitant]
  15. EFFEXOR [Concomitant]
  16. CALTRATE [Concomitant]
  17. NIACIN [Concomitant]
  18. BENICAR [Concomitant]
  19. GEODON [Concomitant]
  20. ASPIRIN [Concomitant]
  21. OSTEO BI-FLEX [Concomitant]
  22. MUCINEX [Concomitant]
  23. FIORICET [Concomitant]
  24. MOBIC [Concomitant]

REACTIONS (2)
  - DRUG INEFFECTIVE [None]
  - AFFECT LABILITY [None]
